FAERS Safety Report 11809925 (Version 1)
Quarter: 2015Q4

REPORT INFORMATION
  Report Type: Spontaneous
  Country: US (occurrence: None)
  Receive Date: 20151207
  Receipt Date: 20151207
  Transmission Date: 20160305
  Serious: No
  Sender: FDA-Public Use
  Company Number: None

PATIENT
  Age: 56 Year
  Sex: Male

DRUGS (1)
  1. SUTENT [Suspect]
     Active Substance: SUNITINIB MALATE
     Indication: MALIGNANT URINARY TRACT NEOPLASM
     Route: 048

REACTIONS (8)
  - Nausea [None]
  - Diarrhoea [None]
  - Blood pressure increased [None]
  - Cold sweat [None]
  - Yellow skin [None]
  - Vomiting [None]
  - Chromaturia [None]
  - Asthenia [None]

NARRATIVE: CASE EVENT DATE: 20151203
